FAERS Safety Report 5465137-7 (Version None)
Quarter: 2007Q3

REPORT INFORMATION
  Report Type: 
  Country: None (occurrence: None)
  Receive Date: 20070820
  Receipt Date: 20070424
  Transmission Date: 20080115
  Serious: No
  Sender: FDA-Public Use
  Company Number: WAES 0704USA05372

PATIENT
  Age: 52 Year
  Sex: Female

DRUGS (12)
  1. JANUVIA [Suspect]
     Indication: TYPE 2 DIABETES MELLITUS
     Dosage: 100 MG/DAILY/PO
     Route: 048
     Dates: start: 20070130
  2. CALTRATE [Concomitant]
  3. CARDIZEM [Concomitant]
  4. COZAAR [Concomitant]
  5. NASACORT [Concomitant]
  6. RANTIDINE-BC [Concomitant]
  7. SINGULAIR [Concomitant]
  8. ASCORBIC ACID [Concomitant]
  9. ASPIRIN [Concomitant]
  10. LORATADINE [Concomitant]
  11. MAGNESIUM (UNSPECIFIED) [Concomitant]
  12. VITAMIN E [Concomitant]

REACTIONS (1)
  - DYSGEUSIA [None]
